FAERS Safety Report 7400343-3 (Version None)
Quarter: 2011Q2

REPORT INFORMATION
  Report Type: 
  Country: None (occurrence: None)
  Receive Date: 20110407
  Receipt Date: 20110330
  Transmission Date: 20111010
  Serious: Yes (Hospitalization, Other)
  Sender: FDA-Public Use
  Company Number: BG-ABBOTT-11P-022-0703853-00

PATIENT
  Age: 53 Year
  Sex: Female
  Weight: 67.056 kg

DRUGS (4)
  1. FOLIC ACID [Concomitant]
     Indication: RHEUMATOID ARTHRITIS
     Dates: start: 20020201
  2. CP 690,550 (BLINDED) [Concomitant]
     Indication: RHEUMATOID ARTHRITIS
     Dates: start: 20100211
  3. HUMIRA [Suspect]
     Indication: RHEUMATOID ARTHRITIS
     Route: 058
     Dates: start: 20100211
  4. METHOTREXATE [Concomitant]
     Indication: RHEUMATOID ARTHRITIS
     Dates: start: 20020501

REACTIONS (2)
  - METRORRHAGIA [None]
  - MENOPAUSE [None]
